FAERS Safety Report 5155918-1 (Version None)
Quarter: 2006Q4

REPORT INFORMATION
  Report Type: 
  Country: None (occurrence: None)
  Receive Date: 20061114
  Receipt Date: 20061103
  Transmission Date: 20070319
  Serious: Yes (Other)
  Sender: FDA-Public Use
  Company Number: 2006087927

PATIENT
  Age: 75 Year
  Sex: Male
  Weight: 79.3795 kg

DRUGS (11)
  1. LIPITOR [Suspect]
     Indication: BLOOD CHOLESTEROL INCREASED
     Dosage: 10 MG (10 MG, 1 IN 1 D), ORAL
     Route: 048
     Dates: start: 20040101, end: 20050501
  2. CRESTOR [Suspect]
     Indication: DRUG USE FOR UNKNOWN INDICATION
  3. DIGITEX (DIGOXIN) [Concomitant]
  4. HYDROCHLOROTHIAZIDE [Concomitant]
  5. WARFARIN SODIUM [Concomitant]
  6. PROCAINAMIDE [Concomitant]
  7. LISINOPRIL [Concomitant]
  8. LOVASTATIN [Concomitant]
  9. ALLOPURINOL [Concomitant]
  10. VIAGRA [Concomitant]
  11. ALPRAZOLAM [Concomitant]

REACTIONS (3)
  - ABASIA [None]
  - MYALGIA [None]
  - PAIN IN EXTREMITY [None]
